FAERS Safety Report 7500913-8 (Version None)
Quarter: 2011Q2

REPORT INFORMATION
  Report Type: 
  Country: None (occurrence: None)
  Receive Date: 20110524
  Receipt Date: 20110516
  Transmission Date: 20111010
  Serious: No
  Sender: FDA-Public Use
  Company Number: US-PFIZER INC-2011105392

PATIENT
  Sex: Male

DRUGS (3)
  1. TYGACIL [Suspect]
     Indication: ABDOMINAL INFECTION
     Dosage: UNK
  2. FLAGYL [Suspect]
     Dosage: UNK
  3. CIPROFLOXACIN [Suspect]
     Dosage: UNK

REACTIONS (1)
  - HEPATIC ENZYME INCREASED [None]
